FAERS Safety Report 6437187-5 (Version None)
Quarter: 2009Q4

REPORT INFORMATION
  Report Type: 
  Country: None (occurrence: None)
  Receive Date: 20091112
  Receipt Date: 20091109
  Transmission Date: 20100525
  Serious: Yes (Death, Life-Threatening, Hospitalization, Disabling, Other)
  Sender: FDA-Public Use
  Company Number: GB-BAYER-200911116BNE

PATIENT
  Age: 70 Year
  Sex: Female
  Weight: 49 kg

DRUGS (12)
  1. SORAFENIB [Suspect]
     Indication: UNEVALUABLE EVENT
     Dosage: UNIT DOSE: 200 MG
     Route: 048
     Dates: start: 20060406, end: 20090505
  2. LANSOPRAZOLE [Concomitant]
     Indication: DYSPEPSIA
     Route: 048
     Dates: start: 20090407, end: 20090407
  3. DIHYDROCODEINE BITARTRATE INJ [Concomitant]
     Indication: PAIN
     Route: 048
     Dates: start: 20090407, end: 20090407
  4. CETIRIZINE [Concomitant]
     Indication: HYPERSENSITIVITY
     Route: 048
     Dates: start: 20060401
  5. CHLORHEXIDINE DIGLUCONATE [Concomitant]
     Indication: DENTAL DISORDER PROPHYLAXIS
     Route: 048
     Dates: start: 20090314
  6. CLOBETASONE BUTYRATE [Concomitant]
     Indication: ECZEMA
     Route: 061
  7. CO-DANTHRAMER [Concomitant]
     Indication: LAXATIVE SUPPORTIVE CARE
     Route: 048
  8. DICLOFENAC [Concomitant]
     Indication: PAIN
     Route: 048
     Dates: start: 20090312
  9. INDAPAMIDE [Concomitant]
     Indication: BLOOD PRESSURE MANAGEMENT
     Route: 048
  10. ANUSOL [Concomitant]
     Indication: ANORECTAL DISCOMFORT
     Dosage: 1 APPLICATION
  11. MEGACE [Concomitant]
     Indication: DRUG USE FOR UNKNOWN INDICATION
     Route: 048
     Dates: start: 20070101
  12. PERINDOPRIL [Concomitant]
     Indication: HYPERTENSION
     Route: 048
     Dates: start: 20080101

REACTIONS (6)
  - CHOLELITHIASIS [None]
  - CONFUSIONAL STATE [None]
  - DEHYDRATION [None]
  - HYPERCALCAEMIA [None]
  - PANCREATITIS [None]
  - SPINAL CORD COMPRESSION [None]
